FAERS Safety Report 13685138 (Version 1)
Quarter: 2017Q2

REPORT INFORMATION
  Report Type: Report from Study
  Country: NL (occurrence: NL)
  Receive Date: 20170623
  Receipt Date: 20170623
  Transmission Date: 20170830
  Serious: Yes (Death, Hospitalization)
  Sender: FDA-Public Use
  Company Number: PHHY2014NL131664

PATIENT
  Age: 46 Year
  Sex: Male
  Weight: 44 kg

DRUGS (1)
  1. VOTUBIA [Suspect]
     Active Substance: EVEROLIMUS
     Indication: KIDNEY ANGIOMYOLIPOMA
     Dosage: 10 MG, QD
     Route: 065
     Dates: start: 20140908, end: 20141024

REACTIONS (5)
  - Second primary malignancy [Fatal]
  - Abdominal pain [Fatal]
  - Constipation [Fatal]
  - Malignant ascites [Fatal]
  - Intestinal adenocarcinoma [Fatal]

NARRATIVE: CASE EVENT DATE: 20140922
